FAERS Safety Report 25138743 (Version 1)
Quarter: 2025Q1

REPORT INFORMATION
  Report Type: Spontaneous
  Country: IT (occurrence: IT)
  Receive Date: 20250330
  Receipt Date: 20250330
  Transmission Date: 20250408
  Serious: No
  Sender: ALKEM
  Company Number: IT-ALKEM LABORATORIES LIMITED-IT-ALKEM-2024-07127

PATIENT
  Age: 27 Year
  Sex: Female

DRUGS (36)
  1. QUETIAPINE FUMARATE [Suspect]
     Active Substance: QUETIAPINE FUMARATE
     Indication: Hallucination, auditory
     Route: 065
  2. QUETIAPINE FUMARATE [Suspect]
     Active Substance: QUETIAPINE FUMARATE
     Indication: Obsessive-compulsive personality disorder
  3. QUETIAPINE FUMARATE [Suspect]
     Active Substance: QUETIAPINE FUMARATE
     Indication: Anxiety
  4. QUETIAPINE FUMARATE [Suspect]
     Active Substance: QUETIAPINE FUMARATE
     Indication: Social avoidant behaviour
  5. QUETIAPINE FUMARATE [Suspect]
     Active Substance: QUETIAPINE FUMARATE
     Indication: Aggression
  6. QUETIAPINE FUMARATE [Suspect]
     Active Substance: QUETIAPINE FUMARATE
     Indication: Psychotic disorder
  7. OXCARBAZEPINE [Suspect]
     Active Substance: OXCARBAZEPINE
     Indication: Social avoidant behaviour
     Route: 065
  8. OXCARBAZEPINE [Suspect]
     Active Substance: OXCARBAZEPINE
     Indication: Aggression
  9. OXCARBAZEPINE [Suspect]
     Active Substance: OXCARBAZEPINE
     Indication: Anxiety
  10. OXCARBAZEPINE [Suspect]
     Active Substance: OXCARBAZEPINE
     Indication: Hallucination, auditory
  11. OXCARBAZEPINE [Suspect]
     Active Substance: OXCARBAZEPINE
     Indication: Obsessive-compulsive personality disorder
  12. OXCARBAZEPINE [Suspect]
     Active Substance: OXCARBAZEPINE
     Indication: Psychotic disorder
  13. FLUVOXAMINE [Suspect]
     Active Substance: FLUVOXAMINE
     Indication: Hallucination, auditory
     Route: 065
  14. FLUVOXAMINE [Suspect]
     Active Substance: FLUVOXAMINE
     Indication: Obsessive-compulsive personality disorder
  15. FLUVOXAMINE [Suspect]
     Active Substance: FLUVOXAMINE
     Indication: Anxiety
  16. FLUVOXAMINE [Suspect]
     Active Substance: FLUVOXAMINE
     Indication: Social avoidant behaviour
  17. FLUVOXAMINE [Suspect]
     Active Substance: FLUVOXAMINE
     Indication: Aggression
  18. FLUVOXAMINE [Suspect]
     Active Substance: FLUVOXAMINE
     Indication: Psychotic disorder
  19. HALOPERIDOL [Suspect]
     Active Substance: HALOPERIDOL
     Indication: Hallucination, auditory
     Route: 065
  20. HALOPERIDOL [Suspect]
     Active Substance: HALOPERIDOL
     Indication: Obsessive-compulsive personality disorder
  21. HALOPERIDOL [Suspect]
     Active Substance: HALOPERIDOL
     Indication: Anxiety
  22. HALOPERIDOL [Suspect]
     Active Substance: HALOPERIDOL
     Indication: Social avoidant behaviour
  23. HALOPERIDOL [Suspect]
     Active Substance: HALOPERIDOL
     Indication: Aggression
  24. HALOPERIDOL [Suspect]
     Active Substance: HALOPERIDOL
     Indication: Psychotic disorder
  25. RISPERIDONE [Suspect]
     Active Substance: RISPERIDONE
     Indication: Hallucination, auditory
     Route: 065
  26. RISPERIDONE [Suspect]
     Active Substance: RISPERIDONE
     Indication: Obsessive-compulsive personality disorder
  27. RISPERIDONE [Suspect]
     Active Substance: RISPERIDONE
     Indication: Anxiety
  28. RISPERIDONE [Suspect]
     Active Substance: RISPERIDONE
     Indication: Social avoidant behaviour
  29. RISPERIDONE [Suspect]
     Active Substance: RISPERIDONE
     Indication: Aggression
  30. RISPERIDONE [Suspect]
     Active Substance: RISPERIDONE
     Indication: Psychotic disorder
  31. VALPROIC ACID [Suspect]
     Active Substance: VALPROIC ACID
     Indication: Hallucination, auditory
     Route: 065
  32. VALPROIC ACID [Suspect]
     Active Substance: VALPROIC ACID
     Indication: Obsessive-compulsive personality disorder
  33. VALPROIC ACID [Suspect]
     Active Substance: VALPROIC ACID
     Indication: Anxiety
  34. VALPROIC ACID [Suspect]
     Active Substance: VALPROIC ACID
     Indication: Social avoidant behaviour
  35. VALPROIC ACID [Suspect]
     Active Substance: VALPROIC ACID
     Indication: Aggression
  36. VALPROIC ACID [Suspect]
     Active Substance: VALPROIC ACID
     Indication: Psychotic disorder

REACTIONS (1)
  - Drug ineffective [Unknown]
